FAERS Safety Report 20223720 (Version 1)
Quarter: 2021Q4

REPORT INFORMATION
  Report Type: Spontaneous
  Country: FR (occurrence: FR)
  Receive Date: 20211223
  Receipt Date: 20211223
  Transmission Date: 20220303
  Serious: Yes (Life-Threatening, Other)
  Sender: FDA-Public Use
  Company Number: FR-ASPEN-GLO2021FR009880

PATIENT
  Age: 57 Year
  Sex: Male
  Weight: 103 kg

DRUGS (3)
  1. OFLOXACIN [Suspect]
     Active Substance: OFLOXACIN
     Indication: Intervertebral discitis
     Route: 065
     Dates: start: 20210918, end: 20211004
  2. RIFAMPIN [Suspect]
     Active Substance: RIFAMPIN
     Indication: Intervertebral discitis
     Dosage: 900 MG, QD
     Route: 065
     Dates: start: 20210914, end: 20211004
  3. ARIXTRA [Suspect]
     Active Substance: FONDAPARINUX SODIUM
     Indication: Pulmonary embolism
     Route: 065
     Dates: start: 20210914, end: 20211004

REACTIONS (1)
  - Immune thrombocytopenia [Recovered/Resolved]

NARRATIVE: CASE EVENT DATE: 20211004
